FAERS Safety Report 9148460 (Version 1)
Quarter: 2013Q1

REPORT INFORMATION
  Report Type: Spontaneous
  Country: US (occurrence: None)
  Receive Date: 20130228
  Receipt Date: 20130228
  Transmission Date: 20140127
  Serious: Yes (Life-Threatening, Hospitalization)
  Sender: FDA-Public Use
  Company Number: None

PATIENT
  Age: 75 Year
  Sex: Female
  Weight: 104.3 kg

DRUGS (1)
  1. IODINE [Suspect]
     Indication: SCAN WITH CONTRAST
     Route: 040
     Dates: start: 20121106, end: 20121106

REACTIONS (1)
  - Iodine allergy [None]
